FAERS Safety Report 14833740 (Version 1)
Quarter: 2018Q2

REPORT INFORMATION
  Report Type: Spontaneous
  Country: US (occurrence: US)
  Receive Date: 20180501
  Receipt Date: 20180501
  Transmission Date: 20180711
  Serious: No
  Sender: FDA-Public Use
  Company Number: US-ROCHE-1930124

PATIENT
  Age: 51 Year
  Sex: Male

DRUGS (2)
  1. AVASTIN [Suspect]
     Active Substance: BEVACIZUMAB
     Indication: PRODUCT USED FOR UNKNOWN INDICATION
     Route: 065
     Dates: end: 201611
  2. XELODA [Suspect]
     Active Substance: CAPECITABINE
     Indication: PRODUCT USED FOR UNKNOWN INDICATION
     Dosage: 500MG PILLS 4 TO 6 A DAY A PER PATIENT TOLERANCE ;ONGOING: UNKNOWN
     Route: 048
     Dates: start: 201703

REACTIONS (4)
  - Decreased appetite [Unknown]
  - Inappropriate schedule of drug administration [Unknown]
  - Lung disorder [Unknown]
  - Abdominal pain upper [Unknown]
